FAERS Safety Report 5616364-7 (Version None)
Quarter: 2008Q1

REPORT INFORMATION
  Report Type: 
  Country: None (occurrence: None)
  Receive Date: 20080205
  Receipt Date: 20080205
  Transmission Date: 20080703
  Serious: Yes (Hospitalization, Disabling, Other)
  Sender: FDA-Public Use
  Company Number: None

PATIENT
  Age: 67 Year
  Sex: Female
  Weight: 79.3795 kg

DRUGS (1)
  1. WELCHOL [Suspect]
     Indication: HYPERCHOLESTEROLAEMIA
     Dosage: 625 MG 1 OR 2 X DAY CHANGED TO HIGHER MG
     Dates: start: 20070301, end: 20070701

REACTIONS (6)
  - ACTIVITIES OF DAILY LIVING IMPAIRED [None]
  - DIVERTICULUM [None]
  - DRUG PRESCRIBING ERROR [None]
  - MEDICATION ERROR [None]
  - MUSCLE INJURY [None]
  - QUALITY OF LIFE DECREASED [None]
